FAERS Safety Report 4679939-8 (Version None)
Quarter: 2005Q2

REPORT INFORMATION
  Report Type: 
  Country: None (occurrence: None)
  Receive Date: 20050531
  Receipt Date: 20050520
  Transmission Date: 20051028
  Serious: Yes (Hospitalization)
  Sender: FDA-Public Use
  Company Number: B0381984A

PATIENT
  Age: 76 Year
  Sex: Female

DRUGS (8)
  1. PAXIL [Suspect]
     Indication: DEPRESSION
     Dosage: 20 MG/PER DAY/ ORAL
     Route: 048
     Dates: start: 20050502, end: 20050516
  2. FAMOTIDINE [Concomitant]
  3. ISOSRBIDE MONONITRATE [Concomitant]
  4. NIFEDIPINE [Concomitant]
  5. FK [Concomitant]
  6. ATORVASTATIN CALCIUM [Concomitant]
  7. BROTIZOLAM [Concomitant]
  8. TINELAC [Concomitant]

REACTIONS (3)
  - DISORIENTATION [None]
  - DIZZINESS [None]
  - SOMNOLENCE [None]
